FAERS Safety Report 21906140 (Version 4)
Quarter: 2023Q2

REPORT INFORMATION
  Report Type: Spontaneous
  Country: DE (occurrence: DE)
  Receive Date: 20230124
  Receipt Date: 20230509
  Transmission Date: 20230722
  Serious: No
  Sender: FDA-Public Use
  Company Number: DE-ARISTO PHARMA-IBUP202301023

PATIENT
  Sex: Female
  Weight: 0.43 kg

DRUGS (16)
  1. IBUPROFEN [Suspect]
     Active Substance: IBUPROFEN
     Indication: Patent ductus arteriosus
     Route: 065
  2. INDOMETHACIN [Concomitant]
     Active Substance: INDOMETHACIN
     Indication: Patent ductus arteriosus
     Route: 065
  3. SILDENAFIL [Concomitant]
     Active Substance: SILDENAFIL
     Indication: Pulmonary hypertension
     Dosage: 3.1 MG/KG/DAY, SILDENAFIL 14 MG/KG/DAY, DEPENDING ON SYSTEMIC BLOOD PRESSURE
     Route: 042
  4. NITRIC OXIDE [Concomitant]
     Active Substance: NITRIC OXIDE
     Indication: Pulmonary hypertension
     Dosage: 20 PPM , MONITOR MET-HEMOGLOBIN. SELECTIVE FALL IN PVR. REBOUND PH ON WEANING OFF INO (RISK CAN BE R
     Route: 055
  5. DEXAMETHASONE [Concomitant]
     Active Substance: DEXAMETHASONE
     Indication: Product used for unknown indication
     Route: 042
  6. SILDENAFIL [Concomitant]
     Active Substance: SILDENAFIL
     Indication: Pulmonary hypertension
     Dosage: INCREASE IN CI. DECREASE IN PVR. MAINTENANCE DOSE: 0.51 MG/KG/DOSE THREE (GREATER THAN 1 YEAR OLD)
     Route: 048
  7. MACITENTAN [Concomitant]
     Active Substance: MACITENTAN
     Indication: Pulmonary arterial hypertension
     Dosage: INCREASE IN CI. DECREASE IN PVR. NOT RECOMMENDED IN PATIENTS WITH MODERATE OR SEVERE HEPATIC IMPAIRM
     Route: 048
  8. SELEXIPAG [Concomitant]
     Active Substance: SELEXIPAG
     Indication: Pulmonary arterial hypertension
     Dosage: 50100 UG (SEE TEXT) 2 X 400 UG , PROSTACYCLIN IP RECEPTOR AGONIST. REDUCTION OF MORBIDITY/MORTALITY
     Route: 048
  9. EPINEPHRINE [Concomitant]
     Active Substance: EPINEPHRINE
     Indication: Cardiac disorder
     Dosage: 0.02 UG/KG/MIN, POSITIVE INOTROPE. INCREASES MYOCARDIAL OXYGEN CONSUMPTION, TACHYCARDIA.
     Route: 042
  10. NOREPINEPHRINE [Concomitant]
     Active Substance: NOREPINEPHRINE
     Indication: Cardiac disorder
     Dosage: 0.2 UG/KG/MIN
     Route: 042
  11. MILRINONE [Concomitant]
     Active Substance: MILRINONE
     Indication: Product used for unknown indication
     Dosage: 0.7 UG/KG/MIN, LOWERS PVR. CAUTION: SYSTEMIC ARTERIAL HYPOTENSION.
     Route: 042
  12. LEVOSIMENDAN [Concomitant]
     Active Substance: LEVOSIMENDAN
     Indication: Product used for unknown indication
     Dosage: 0.12 UG/KG/MIN  LOWERS PVR. CAUTION: SYSTEMIC ARTERIAL HYPOTENSION. LONG HALF-LIFE.
     Route: 042
  13. MORPHINE [Concomitant]
     Active Substance: MORPHINE
     Indication: Product used for unknown indication
     Dosage: 0.18 MG/KG/H, SLOWLY WEANED OFF DURING PICU STAY
     Route: 042
  14. MIDAZOLAM [Concomitant]
     Active Substance: MIDAZOLAM
     Indication: Product used for unknown indication
     Dosage: 0.09 MG/KG/H, SLOWLY WEANED OFF DURING PICU STAY
     Route: 042
  15. CISATRACURIUM [Concomitant]
     Active Substance: CISATRACURIUM
     Indication: Product used for unknown indication
     Dosage: 0.32 MG/KG/H, DURING MECHANICAL VENTILATION
     Route: 042
  16. ROCURONIUM [Concomitant]
     Active Substance: ROCURONIUM BROMIDE
     Indication: Product used for unknown indication
     Dosage: 1 MG/KG/DOSE, SINGLE DOSING. IN THIS CASE: TRANSITIONING FROM CIS-ATRACURIUM
     Route: 042

REACTIONS (1)
  - Off label use [Unknown]
